FAERS Safety Report 16322294 (Version 1)
Quarter: 2019Q2

REPORT INFORMATION
  Report Type: Spontaneous
  Country: US (occurrence: US)
  Receive Date: 20190516
  Receipt Date: 20190516
  Transmission Date: 20190711
  Serious: Yes (Hospitalization)
  Sender: FDA-Public Use
  Company Number: US-TEVA-2019-US-1049557

PATIENT
  Age: 64 Year
  Sex: Male

DRUGS (1)
  1. PREDNISONE. [Suspect]
     Active Substance: PREDNISONE
     Indication: SARCOIDOSIS
     Dosage: 20 MILLIGRAM DAILY;
     Route: 065

REACTIONS (3)
  - Vision blurred [Unknown]
  - Intracranial pressure increased [Unknown]
  - Meningitis cryptococcal [Recovered/Resolved]
